FAERS Safety Report 5670133-0 (Version None)
Quarter: 2008Q1

REPORT INFORMATION
  Report Type: 
  Country: None (occurrence: None)
  Receive Date: 20080312
  Receipt Date: 20080228
  Transmission Date: 20080703
  Serious: Yes (Hospitalization)
  Sender: FDA-Public Use
  Company Number: 02100-JPN-08-0036

PATIENT
  Age: 66 Year
  Sex: Male

DRUGS (11)
  1. PLETAL [Suspect]
     Indication: ARTERIOSCLEROSIS OBLITERANS
     Dosage: 100 MG, BID, ORAL
     Route: 048
     Dates: start: 20070130, end: 20071122
  2. ASPIRIN [Suspect]
     Indication: ARTERIOSCLEROSIS OBLITERANS
     Dosage: 100 MG, QD, ORAL
     Route: 048
     Dates: start: 20061221, end: 20071122
  3. WARFARIN SODIUM [Suspect]
     Indication: ARTERIOSCLEROSIS OBLITERANS
     Dosage: QD; ORAL
     Route: 048
     Dates: start: 20061221, end: 20071122
  4. CS-866 (CS-866) [Concomitant]
  5. PLACEBO (PLACEBO) [Concomitant]
  6. ADALAT CC [Concomitant]
  7. RENIVANCE (ENALAPRIL MALEATE) [Concomitant]
  8. CARVEDILOL [Concomitant]
  9. NORVASC [Concomitant]
  10. GLYBURIDE [Concomitant]
  11. PIMENOL (PIRMENOL HYDROCHLORIDE [Concomitant]

REACTIONS (5)
  - DYSPNOEA [None]
  - FALL [None]
  - HAEMOTHORAX [None]
  - INJURY [None]
  - PAIN [None]
